FAERS Safety Report 13447431 (Version 10)
Quarter: 2020Q4

REPORT INFORMATION
  Report Type: Spontaneous
  Country: US (occurrence: US)
  Receive Date: 20170417
  Receipt Date: 20201208
  Transmission Date: 20210113
  Serious: Yes (Other)
  Sender: FDA-Public Use
  Company Number: US-PFIZER INC-2017165509

PATIENT
  Age: 68 Year
  Sex: Female
  Weight: 69 kg

DRUGS (4)
  1. VITAMIN D [COLECALCIFEROL] [Concomitant]
     Active Substance: CHOLECALCIFEROL
     Indication: VITAMIN D DECREASED
     Dosage: 1.25 MG, WEEKLY [1.25 MG, 5,000 UNITS. ONE EACH WEEK BY MOUTH]
     Route: 048
  2. SYNTHROID [Concomitant]
     Active Substance: LEVOTHYROXINE SODIUM
     Indication: THYROID DISORDER
     Dosage: 50 UG, 1X/DAY(BEEN TAKING FOR 2 1/2 YEARS)
     Route: 048
  3. NORVASC [Suspect]
     Active Substance: AMLODIPINE BESYLATE
     Indication: HYPERTENSION
     Dosage: 10 MG
     Route: 048
     Dates: start: 2016
  4. NORVASC [Suspect]
     Active Substance: AMLODIPINE BESYLATE
     Dosage: 10 MG, DAILY
     Route: 048

REACTIONS (15)
  - Epistaxis [Unknown]
  - Ischaemia [Unknown]
  - Brain oedema [Unknown]
  - Illness [Unknown]
  - Pruritus [Unknown]
  - Sinus arrhythmia [Unknown]
  - Thrombosis [Not Recovered/Not Resolved]
  - Chest pain [Unknown]
  - Cardiac disorder [Unknown]
  - Suspected counterfeit product [Unknown]
  - Ventricular hypertrophy [Unknown]
  - Drug ineffective [Unknown]
  - Poor quality product administered [Unknown]
  - Haemoptysis [Unknown]
  - Product size issue [Unknown]
